FAERS Safety Report 9632319 (Version 1)
Quarter: 2013Q4

REPORT INFORMATION
  Report Type: Report from Study
  Country: US (occurrence: US)
  Receive Date: 20131018
  Receipt Date: 20131018
  Transmission Date: 20140711
  Serious: Yes (Other)
  Sender: FDA-Public Use
  Company Number: US-JNJFOC-20131007805

PATIENT
  Sex: Male
  Weight: 92.99 kg

DRUGS (1)
  1. REMICADE [Suspect]
     Indication: PSORIATIC ARTHROPATHY
     Dosage: EVERY 6 TO 7 WEEKS
     Route: 042
     Dates: end: 201305

REACTIONS (2)
  - Skin cancer [Recovered/Resolved]
  - Tooth disorder [Recovered/Resolved]
